FAERS Safety Report 25025100 (Version 2)
Quarter: 2025Q4

REPORT INFORMATION
  Report Type: Spontaneous
  Country: GB (occurrence: GB)
  Receive Date: 20250228
  Receipt Date: 20251013
  Transmission Date: 20260118
  Serious: Yes (Other)
  Sender: AMGEN
  Company Number: GB-AMGEN-GBRSP2025038248

PATIENT

DRUGS (6)
  1. ADALIMUMAB [Suspect]
     Active Substance: ADALIMUMAB
     Indication: Colitis ulcerative
     Dosage: UNK
     Route: 065
  2. ADALIMUMAB [Suspect]
     Active Substance: ADALIMUMAB
     Indication: Enteritis
  3. ADALIMUMAB [Suspect]
     Active Substance: ADALIMUMAB
     Indication: Inflammatory bowel disease
  4. USTEKINUMAB [Suspect]
     Active Substance: USTEKINUMAB
     Indication: Colitis ulcerative
     Dosage: UNK
     Route: 065
  5. USTEKINUMAB [Suspect]
     Active Substance: USTEKINUMAB
     Indication: Enteritis
  6. USTEKINUMAB [Suspect]
     Active Substance: USTEKINUMAB
     Indication: Inflammatory bowel disease

REACTIONS (9)
  - Intestinal anastomosis complication [Unknown]
  - Neuropathy peripheral [Unknown]
  - Osteomyelitis [Unknown]
  - Rash [Unknown]
  - Arthralgia [Unknown]
  - Treatment failure [Unknown]
  - Loss of therapeutic response [Unknown]
  - Drug specific antibody present [Unknown]
  - Drug ineffective [Unknown]
